FAERS Safety Report 19582850 (Version 1)
Quarter: 2021Q3

REPORT INFORMATION
  Report Type: Spontaneous
  Country: DE (occurrence: DE)
  Receive Date: 20210720
  Receipt Date: 20210720
  Transmission Date: 20211014
  Serious: Yes (Death, Other)
  Sender: FDA-Public Use
  Company Number: DE-009507513-2107DEU004682

PATIENT
  Age: 45 Year
  Sex: Female

DRUGS (4)
  1. PEMBROLIZUMAB. [Suspect]
     Active Substance: PEMBROLIZUMAB
     Dosage: 2 MILLIGRAM/KILOGRAM BODY WEIGHT, UNK (3 WEEKS AFTER THE FIRST DOSE)
  2. PEMBROLIZUMAB. [Suspect]
     Active Substance: PEMBROLIZUMAB
     Indication: PROGRESSIVE MULTIFOCAL LEUKOENCEPHALOPATHY
     Dosage: 2 MILLIGRAM/KILOGRAM BODY WEIGHT, UNK
  3. PEMBROLIZUMAB. [Suspect]
     Active Substance: PEMBROLIZUMAB
     Dosage: 2 MILLIGRAM/KILOGRAM BODY WEIGHT, UNK (4 MONTHS AFTER THE FIRST DOSE)
  4. PEMBROLIZUMAB. [Suspect]
     Active Substance: PEMBROLIZUMAB
     Dosage: 0.5 MILLIGRAM/KILOGRAM BODY WEIGHT, UNK

REACTIONS (7)
  - Thrombocytopenia [Fatal]
  - Diarrhoea [Unknown]
  - Off label use [Unknown]
  - Pancytopenia [Unknown]
  - Haemorrhage [Fatal]
  - Leukopenia [Unknown]
  - Immune-mediated hepatitis [Unknown]
